FAERS Safety Report 23762339 (Version 2)
Quarter: 2024Q3

REPORT INFORMATION
  Report Type: Spontaneous
  Country: GB (occurrence: GB)
  Receive Date: 20240419
  Receipt Date: 20240724
  Transmission Date: 20241017
  Serious: Yes (Other)
  Sender: LUPIN
  Company Number: GB-LUPIN HEALTHCARE (UK) LIMITED-2024-03215

PATIENT
  Sex: Male

DRUGS (11)
  1. LEVETIRACETAM [Interacting]
     Active Substance: LEVETIRACETAM
     Indication: Epilepsy
     Dosage: 1000 MG, QD
     Route: 065
  2. LEVETIRACETAM [Interacting]
     Active Substance: LEVETIRACETAM
     Dosage: 500 MG, QD (REDUCED DOSE; ON DAY 0 )
     Route: 065
  3. LEVETIRACETAM [Interacting]
     Active Substance: LEVETIRACETAM
     Dosage: 375 MG, QD (DAY 1 FROM PRESENTATION)
     Route: 065
  4. LEVETIRACETAM [Interacting]
     Active Substance: LEVETIRACETAM
     Dosage: 500 MG, QD (BETWEEN DAY 2 AND 3 )
     Route: 065
  5. LEVETIRACETAM [Interacting]
     Active Substance: LEVETIRACETAM
     Dosage: 250 MG, QD (BETWEEN DAY 5 AND 6 )
     Route: 065
  6. LAMOTRIGINE [Interacting]
     Active Substance: LAMOTRIGINE
     Indication: Epilepsy
     Dosage: 400 MILLIGRAM, QD (5 YR 3MONTHS )
     Route: 065
  7. LAMOTRIGINE [Interacting]
     Active Substance: LAMOTRIGINE
     Dosage: 200 MILLIGRAM, QD (DAY 0 FROM PRESENTATION )
     Route: 065
  8. LAMOTRIGINE [Interacting]
     Active Substance: LAMOTRIGINE
     Dosage: 150 MILLIGRAM, QD (DAY 1 FROM PRESENTATION )
     Route: 065
  9. LAMOTRIGINE [Interacting]
     Active Substance: LAMOTRIGINE
     Dosage: 200 MILLIGRAM, QD (BETWEEN DAY 2 AND 3)
     Route: 065
  10. LAMOTRIGINE [Interacting]
     Active Substance: LAMOTRIGINE
     Dosage: 100 MILLIGRAM, QD (BETWEEN DAY 5 AND 6 )
     Route: 065
  11. LAMOTRIGINE [Interacting]
     Active Substance: LAMOTRIGINE
     Dosage: UNK, QD
     Route: 065

REACTIONS (2)
  - Toxic optic neuropathy [Recovered/Resolved]
  - Drug interaction [Unknown]
